FAERS Safety Report 5945297-1 (Version None)
Quarter: 2008Q4

REPORT INFORMATION
  Report Type: 
  Country: None (occurrence: None)
  Receive Date: 20081107
  Receipt Date: 20081028
  Transmission Date: 20090506
  Serious: Yes (Hospitalization)
  Sender: FDA-Public Use
  Company Number: JP-ROCHE-594959

PATIENT
  Age: 54 Year
  Sex: Male
  Weight: 58 kg

DRUGS (5)
  1. RIBAVIRIN [Suspect]
     Route: 065
     Dates: start: 20060501, end: 20060701
  2. RIBAVIRIN [Suspect]
     Route: 065
     Dates: start: 20060701, end: 20061101
  3. INTERFERON ALFA [Suspect]
     Dosage: LOW-VOLUME.
     Route: 065
     Dates: start: 20051101, end: 20060501
  4. PEG-INTERFERON ALFA 2B [Suspect]
     Route: 065
     Dates: start: 20060501, end: 20060901
  5. PEG-INTERFERON ALFA 2B [Suspect]
     Route: 065
     Dates: start: 20060901, end: 20061225

REACTIONS (1)
  - APLASIA PURE RED CELL [None]
